FAERS Safety Report 8347645-4 (Version None)
Quarter: 2012Q2

REPORT INFORMATION
  Report Type: 
  Country: None (occurrence: None)
  Receive Date: 20120509
  Receipt Date: 20120503
  Transmission Date: 20120825
  Serious: Yes (Hospitalization)
  Sender: FDA-Public Use
  Company Number: ES-BAYER-2012-044556

PATIENT
  Age: 59 Year
  Sex: Female

DRUGS (8)
  1. OMEPRAZOLE [Concomitant]
  2. PHENOBARBITAL TAB [Concomitant]
     Indication: EPILEPSY
  3. SIMVASTATIN [Concomitant]
  4. ALPRAZOLAM [Concomitant]
  5. MOXIFLOXACIN [Suspect]
     Indication: PYREXIA
     Route: 048
     Dates: start: 20120418, end: 20120418
  6. ANTIEPILEPTICS [Concomitant]
     Route: 065
  7. ATROVENT [Concomitant]
  8. PULMICORT [Concomitant]

REACTIONS (3)
  - PARAESTHESIA [None]
  - HYPERSENSITIVITY [None]
  - CHOKING [None]
